FAERS Safety Report 14151221 (Version 2)
Quarter: 2017Q4

REPORT INFORMATION
  Report Type: Spontaneous
  Country: US (occurrence: US)
  Receive Date: 20171102
  Receipt Date: 20171226
  Transmission Date: 20180321
  Serious: Yes (Other)
  Sender: FDA-Public Use
  Company Number: US-SUN PHARMACEUTICAL INDUSTRIES LTD-2017US-153829

PATIENT
  Sex: Female

DRUGS (6)
  1. METHOTREXATE. [Suspect]
     Active Substance: METHOTREXATE
     Indication: METASTATIC CARCINOID TUMOUR
  2. VINCRISTINE [Suspect]
     Active Substance: VINCRISTINE
     Indication: METASTATIC CARCINOID TUMOUR
  3. VINCRISTINE [Suspect]
     Active Substance: VINCRISTINE
     Indication: CHOROID PLEXUS CARCINOMA
  4. VINCRISTINE [Suspect]
     Active Substance: VINCRISTINE
     Indication: METASTASES TO MENINGES
     Dosage: 1.5 MG/M2, 1 CYCLICAL
     Route: 065
     Dates: start: 201308, end: 201309
  5. METHOTREXATE. [Suspect]
     Active Substance: METHOTREXATE
     Indication: METASTASES TO MENINGES
  6. METHOTREXATE. [Suspect]
     Active Substance: METHOTREXATE
     Indication: CHOROID PLEXUS CARCINOMA
     Dosage: 8 MG/M2, 1 CYCLICAL
     Route: 065
     Dates: start: 201308, end: 201309

REACTIONS (1)
  - Decreased appetite [Unknown]

NARRATIVE: CASE EVENT DATE: 2013
